FAERS Safety Report 7247662-1 (Version None)
Quarter: 2011Q1

REPORT INFORMATION
  Report Type: 
  Country: None (occurrence: None)
  Receive Date: 20110127
  Receipt Date: 20110119
  Transmission Date: 20110831
  Serious: Yes (Other)
  Sender: FDA-Public Use
  Company Number: DE-GENZYME-CAMP-1001305

PATIENT
  Age: 53 Year
  Sex: Male

DRUGS (11)
  1. CAMPATH [Suspect]
     Indication: ACUTE GRAFT VERSUS HOST DISEASE
     Dosage: UNK
     Route: 042
  2. MYCOPHENOLATE MOFETIL [Concomitant]
     Indication: PROPHYLAXIS AGAINST GRAFT VERSUS HOST DISEASE
     Dosage: 2 X 15 MG/KG, QD
  3. FLUDARA [Suspect]
     Indication: STEM CELL TRANSPLANT
     Dosage: UNK
     Route: 065
  4. BUSULFAN [Suspect]
     Indication: STEM CELL TRANSPLANT
     Dosage: UNK
     Route: 065
  5. FLUCONAZOLE [Concomitant]
     Indication: INFECTION PROPHYLAXIS
  6. ACICLOVIR [Concomitant]
     Indication: INFECTION PROPHYLAXIS
  7. ANTI-THYMOCYTE GLOBULIN NOS [Concomitant]
     Indication: PROPHYLAXIS AGAINST GRAFT VERSUS HOST DISEASE
  8. TRIMETHOPRIM + SULFAMETHOXAZOLE [Concomitant]
     Indication: INFECTION PROPHYLAXIS
  9. CORTICOSTEROID NOS [Concomitant]
     Indication: ACUTE GRAFT VERSUS HOST DISEASE
     Dosage: UNK
  10. CAMPATH [Suspect]
     Dosage: 20 MG, EVERY 2-3 WEEKS
     Route: 042
  11. CYCLOSPORINE [Concomitant]
     Indication: PROPHYLAXIS AGAINST GRAFT VERSUS HOST DISEASE
     Dosage: 3 MG/KG, STARTING AT DAY -1

REACTIONS (4)
  - CHRONIC GRAFT VERSUS HOST DISEASE [None]
  - PYREXIA [None]
  - CYSTITIS VIRAL [None]
  - ORGANISING PNEUMONIA [None]
